FAERS Safety Report 25296077 (Version 2)
Quarter: 2025Q2

REPORT INFORMATION
  Report Type: Spontaneous
  Country: US (occurrence: US)
  Receive Date: 20250511
  Receipt Date: 20250514
  Transmission Date: 20250716
  Serious: No
  Sender: SANOFI AVENTIS
  Company Number: US-SA-2025SA132303

PATIENT
  Age: 73 Year
  Sex: Female

DRUGS (2)
  1. DUPIXENT [Suspect]
     Active Substance: DUPILUMAB
     Indication: Dermatitis atopic
     Route: 058
     Dates: start: 202502, end: 202502
  2. DUPIXENT [Suspect]
     Active Substance: DUPILUMAB
     Indication: Neurodermatitis
     Dosage: 300 MG, QOW
     Route: 058
     Dates: start: 2025

REACTIONS (2)
  - Fatigue [Not Recovered/Not Resolved]
  - Dry eye [Not Recovered/Not Resolved]

NARRATIVE: CASE EVENT DATE: 20250201
